FAERS Safety Report 18682587 (Version 1)
Quarter: 2020Q4

REPORT INFORMATION
  Report Type: Spontaneous
  Country: US (occurrence: US)
  Receive Date: 20201228
  Receipt Date: 20201228
  Transmission Date: 20210114
  Serious: Yes (Hospitalization)
  Sender: FDA-Public Use
  Company Number: None

PATIENT
  Age: 59 Year
  Sex: Male
  Weight: 94 kg

DRUGS (1)
  1. WARFARIN (WARFARIN NA (EXELAN) 2MG TAB) [Suspect]
     Active Substance: WARFARIN SODIUM
     Indication: ANTITHROMBIN III DEFICIENCY
     Route: 048
     Dates: start: 20100105, end: 20201011

REACTIONS (2)
  - Treatment failure [None]
  - Pulmonary embolism [None]

NARRATIVE: CASE EVENT DATE: 20201011
